FAERS Safety Report 18980972 (Version 1)
Quarter: 2021Q1

REPORT INFORMATION
  Report Type: Spontaneous
  Country: US (occurrence: US)
  Receive Date: 20210307
  Receipt Date: 20210307
  Transmission Date: 20210420
  Serious: Yes (Disabling)
  Sender: FDA-Public Use
  Company Number: None

PATIENT
  Age: 20 Year
  Sex: Female
  Weight: 51.75 kg

DRUGS (12)
  1. MAGNESIUM [Concomitant]
     Active Substance: MAGNESIUM
  2. COLLAGEN [Concomitant]
     Active Substance: COLLAGEN
  3. NAC [Concomitant]
  4. OMEGA 3 [Concomitant]
     Active Substance: OMEGA-3 FATTY ACIDS
  5. CIPRO [Concomitant]
     Active Substance: CIPROFLOXACIN HYDROCHLORIDE
  6. SPIRULINA [Concomitant]
     Active Substance: HERBALS\SPIRULINA
  7. PROBIOTIC [Concomitant]
     Active Substance: PROBIOTICS NOS
  8. VITAMIN D3 [Concomitant]
     Active Substance: CHOLECALCIFEROL
  9. MILK THISTLE [Concomitant]
     Active Substance: DIETARY SUPPLEMENT\HERBALS\MILK THISTLE
  10. CIPROFLOXACIN 500MG PO [Suspect]
     Active Substance: CIPROFLOXACIN
     Indication: URINARY TRACT INFECTION
     Dosage: ?          QUANTITY:1 TABLET(S);?
     Route: 048
  11. COENZYME Q10 [Concomitant]
     Active Substance: DIETARY SUPPLEMENT\UBIDECARENONE
  12. L?CARNITINE [Concomitant]
     Active Substance: LEVOCARNITINE

REACTIONS (10)
  - Hypoaesthesia [None]
  - Muscle spasms [None]
  - Asthenia [None]
  - Tendon pain [None]
  - Paraesthesia [None]
  - Feeling abnormal [None]
  - Tendon discomfort [None]
  - Anxiety [None]
  - Gait disturbance [None]
  - Exercise tolerance decreased [None]

NARRATIVE: CASE EVENT DATE: 20180625
